FAERS Safety Report 22958968 (Version 2)
Quarter: 2023Q4

REPORT INFORMATION
  Report Type: Spontaneous
  Country: None (occurrence: US)
  Receive Date: 20230919
  Receipt Date: 20231006
  Transmission Date: 20240109
  Serious: Yes (Death, Other)
  Sender: FDA-Public Use
  Company Number: US-ALXN-A202312190

PATIENT
  Age: 81 Year
  Sex: Male
  Weight: 130 kg

DRUGS (30)
  1. IMURAN [Suspect]
     Active Substance: AZATHIOPRINE
     Dosage: 150 MG, QD
     Route: 048
     Dates: start: 20170606
  2. IMURAN [Suspect]
     Active Substance: AZATHIOPRINE
     Indication: Product used for unknown indication
     Dosage: 25 MG, QD
     Route: 048
     Dates: start: 20170503
  3. IMURAN [Suspect]
     Active Substance: AZATHIOPRINE
     Dosage: 250 MG, QD
     Dates: start: 20180822, end: 202211
  4. ULTOMIRIS [Suspect]
     Active Substance: RAVULIZUMAB-CWVZ
     Indication: Myasthenia gravis
     Dosage: 3000 MG, UNK
     Route: 042
     Dates: start: 20201029
  5. ULTOMIRIS [Suspect]
     Active Substance: RAVULIZUMAB-CWVZ
     Dosage: 3600 MG, UNK
     Route: 042
     Dates: start: 20210510, end: 20220809
  6. ULTOMIRIS [Suspect]
     Active Substance: RAVULIZUMAB-CWVZ
     Dosage: 3600 MG, UNK
     Route: 042
     Dates: start: 20221004
  7. ULTOMIRIS [Suspect]
     Active Substance: RAVULIZUMAB-CWVZ
     Dosage: 3600 MG, UNK
     Route: 042
     Dates: start: 20221129
  8. ULTOMIRIS [Suspect]
     Active Substance: RAVULIZUMAB-CWVZ
     Dosage: 3600 MG, UNK
     Route: 042
     Dates: start: 20230124
  9. ULTOMIRIS [Suspect]
     Active Substance: RAVULIZUMAB-CWVZ
     Dosage: 3600 MG, UNK
     Route: 065
     Dates: start: 20201112
  10. ULTOMIRIS [Suspect]
     Active Substance: RAVULIZUMAB-CWVZ
     Dosage: 3600 MG, UNK
     Route: 065
     Dates: start: 20210429
  11. ATIVAN [Concomitant]
     Active Substance: LORAZEPAM
     Indication: Anxiety
     Dosage: 0.5 MG, Q6H
     Route: 048
     Dates: start: 20150902
  12. BACTRIM [Concomitant]
     Active Substance: SULFAMETHOXAZOLE\TRIMETHOPRIM
     Indication: Antifungal prophylaxis
     Dosage: 80 MG, TIW
     Route: 048
     Dates: start: 20230119
  13. CYMBALTA [Concomitant]
     Active Substance: DULOXETINE HYDROCHLORIDE
     Indication: Depression
     Dosage: 90 MG, QD
     Route: 048
     Dates: start: 20170606
  14. DELTASONE                          /00016001/ [Concomitant]
     Indication: Myasthenia gravis
     Dosage: 10 MG, QD
     Route: 048
     Dates: start: 20230119
  15. FLOMAX [Concomitant]
     Active Substance: TAMSULOSIN HYDROCHLORIDE
     Indication: Benign prostatic hyperplasia
     Dosage: 0.4 MG, QD
     Route: 048
     Dates: start: 20150902
  16. HELIUM W/OXYGEN [Concomitant]
     Indication: Chronic obstructive pulmonary disease
     Dosage: 2 UNK, PRN
     Route: 055
     Dates: start: 201706
  17. LASIX [Concomitant]
     Active Substance: FUROSEMIDE
     Indication: Oedema
     Dosage: 40 MG, QD
     Route: 048
     Dates: start: 20170427
  18. MESTINON [Concomitant]
     Active Substance: PYRIDOSTIGMINE BROMIDE
     Indication: Myasthenia gravis
     Dosage: 60 MG, TID
     Route: 048
     Dates: start: 20170427
  19. NEURONTIN [Concomitant]
     Active Substance: GABAPENTIN
     Indication: Neuropathy peripheral
     Dosage: 300 MG, TID
     Route: 048
     Dates: start: 20171218
  20. NEURONTIN [Concomitant]
     Active Substance: GABAPENTIN
     Indication: Back pain
  21. NEURONTIN [Concomitant]
     Active Substance: GABAPENTIN
     Indication: Restless legs syndrome
  22. NITROSTAT [Concomitant]
     Active Substance: NITROGLYCERIN
     Indication: Angina pectoris
     Dosage: 0.4 MG, 3 DOSES WITHIN 15 MINUTES
     Route: 060
     Dates: start: 20191007
  23. PROAIR HFA [Concomitant]
     Active Substance: ALBUTEROL SULFATE
     Indication: Asthma
     Dosage: 90 ?G, Q6H
     Route: 055
     Dates: start: 20210510
  24. PROAIR HFA [Concomitant]
     Active Substance: ALBUTEROL SULFATE
     Indication: Chronic obstructive pulmonary disease
  25. OMEPRAZOLE [Concomitant]
     Active Substance: OMEPRAZOLE
     Indication: Gastritis
     Dosage: 20 MG, QD
     Route: 048
     Dates: start: 20230119
  26. RISPERDAL [Concomitant]
     Active Substance: RISPERIDONE
     Indication: Anxiety
     Dosage: 2 MG, QD
     Route: 048
     Dates: start: 20150902
  27. TOPROL XL [Concomitant]
     Active Substance: METOPROLOL SUCCINATE
     Indication: Essential hypertension
     Dosage: 50 MG, QD
     Route: 048
     Dates: start: 20151111
  28. TRELEGY ELLIPTA [Concomitant]
     Active Substance: FLUTICASONE FUROATE\UMECLIDINIUM BROMIDE\VILANTEROL TRIFENATATE
     Indication: Asthma
     Dosage: 200-62.5-25 ?G, QD
     Route: 055
     Dates: start: 20210510
  29. TRELEGY ELLIPTA [Concomitant]
     Active Substance: FLUTICASONE FUROATE\UMECLIDINIUM BROMIDE\VILANTEROL TRIFENATATE
     Indication: Chronic obstructive pulmonary disease
  30. VITAMIN D3 [Concomitant]
     Active Substance: CHOLECALCIFEROL
     Indication: Supplementation therapy
     Dosage: 1000 UT, QD
     Route: 048
     Dates: start: 20170717

REACTIONS (3)
  - Malignant melanoma [Fatal]
  - Pancytopenia [Unknown]
  - Laboratory test abnormal [Unknown]

NARRATIVE: CASE EVENT DATE: 20220801
